FAERS Safety Report 23674197 (Version 1)
Quarter: 2024Q1

REPORT INFORMATION
  Report Type: Report from Study
  Country: US (occurrence: US)
  Receive Date: 20240326
  Receipt Date: 20240326
  Transmission Date: 20240409
  Serious: Yes (Life-Threatening, Hospitalization, Other)
  Sender: FDA-Public Use
  Company Number: US-BEH-2024170178

PATIENT
  Age: 50 Year
  Sex: Female
  Weight: 63.2 kg

DRUGS (1)
  1. BERINERT [Suspect]
     Active Substance: HUMAN C1-ESTERASE INHIBITOR
     Indication: Hereditary angioedema
     Dosage: 3600 INTERNATIONAL UNIT/KILOGRAM, BIW
     Route: 058
     Dates: start: 20240322, end: 20240322

REACTIONS (5)
  - Hereditary angioedema [Unknown]
  - Constipation [Unknown]
  - Dysuria [Unknown]
  - Neoplasm [Unknown]
  - Cardiac dysfunction [Unknown]

NARRATIVE: CASE EVENT DATE: 20240301
